FAERS Safety Report 4404694-6 (Version None)
Quarter: 2004Q3

REPORT INFORMATION
  Report Type: 
  Country: None (occurrence: None)
  Receive Date: 20040720
  Receipt Date: 20031013
  Transmission Date: 20050211
  Serious: No
  Sender: FDA-Public Use
  Company Number: LUP-0001 (0) 2003-03257

PATIENT
  Age: 41 Year
  Sex: Female
  Weight: 70.3075 kg

DRUGS (2)
  1. CEFUROXIME AXETIL (CEFUROXIME AXETIL) (500 MILLIGRAM, TABLETS) [Suspect]
     Indication: UPPER RESPIRATORY TRACT INFECTION
     Dosage: 1000 MG (500 MG, 2 IN 1 D), ORAL
     Route: 048
     Dates: start: 20031009, end: 20031011
  2. PROPRANOLOL [Concomitant]

REACTIONS (4)
  - DYSGEUSIA [None]
  - DYSPEPSIA [None]
  - NAUSEA [None]
  - PHARMACEUTICAL PRODUCT COMPLAINT [None]
